FAERS Safety Report 24058775 (Version 2)
Quarter: 2024Q3

REPORT INFORMATION
  Report Type: Report from Study
  Country: US (occurrence: US)
  Receive Date: 20240708
  Receipt Date: 20240911
  Transmission Date: 20241017
  Serious: Yes (Hospitalization)
  Sender: GLAXOSMITHKLINE
  Company Number: US-GLAXOSMITHKLINE-US2024AMR082086

PATIENT
  Age: 49 Year
  Sex: Female

DRUGS (2)
  1. NIRAPARIB [Suspect]
     Active Substance: NIRAPARIB
     Indication: Ovarian cancer
     Dosage: 200 MG, QD
     Dates: start: 202405
  2. NIRAPARIB [Suspect]
     Active Substance: NIRAPARIB
     Dosage: 100 MG, QD
     Dates: start: 20240805

REACTIONS (10)
  - Hospitalisation [Recovered/Resolved]
  - Heart rate increased [Recovered/Resolved]
  - Red blood cell count decreased [Unknown]
  - Blood pressure increased [Recovered/Resolved]
  - Fatigue [Recovering/Resolving]
  - Gait disturbance [Unknown]
  - Dyspnoea exertional [Unknown]
  - Vomiting [Unknown]
  - Chills [Unknown]
  - Full blood count abnormal [Unknown]

NARRATIVE: CASE EVENT DATE: 20240724
